FAERS Safety Report 4574289-2 (Version None)
Quarter: 2005Q1

REPORT INFORMATION
  Report Type: 
  Country: None (occurrence: None)
  Receive Date: 20050208
  Receipt Date: 20041019
  Transmission Date: 20050727
  Serious: No
  Sender: FDA-Public Use
  Company Number: US-GLAXOSMITHKLINE-A0536215A

PATIENT
  Age: 80 Year
  Sex: Male

DRUGS (4)
  1. PAROXETINE HCL [Suspect]
     Indication: DRUG USE FOR UNKNOWN INDICATION
     Dosage: 20MG PER DAY
     Route: 048
     Dates: start: 20041015
  2. ACTOS [Concomitant]
     Route: 065
  3. TRAZODONE [Concomitant]
     Route: 065
  4. OXYGEN [Concomitant]
     Dosage: 6L UNKNOWN
     Route: 065

REACTIONS (3)
  - CHEST PAIN [None]
  - DIARRHOEA [None]
  - PHARMACEUTICAL PRODUCT COMPLAINT [None]
